FAERS Safety Report 18636914 (Version 1)
Quarter: 2020Q4

REPORT INFORMATION
  Report Type: Spontaneous
  Country: FR (occurrence: FR)
  Receive Date: 20201218
  Receipt Date: 20201218
  Transmission Date: 20210114
  Serious: Yes (Other)
  Sender: FDA-Public Use
  Company Number: FR-BAUSCH-BL-2020-036190

PATIENT
  Age: 72 Year
  Sex: Male
  Weight: 100 kg

DRUGS (20)
  1. ADVAGRAF [Suspect]
     Active Substance: TACROLIMUS
     Indication: ORGAN TRANSPLANT
     Dosage: N THE MORNING
     Route: 048
     Dates: start: 2009
  2. PERMIXON [Concomitant]
     Active Substance: HERBALS\SAW PALMETTO
     Indication: BENIGN PROSTATIC HYPERPLASIA
     Dosage: 1 IN THE MORNING AND 1 AT NOON
     Route: 048
     Dates: start: 201602
  3. CELLCEPT [Suspect]
     Active Substance: MYCOPHENOLATE MOFETIL\MYCOPHENOLATE MOFETIL HYDROCHLORIDE
     Indication: ORGAN TRANSPLANT
     Dosage: MORNING AND EVENING
     Route: 048
     Dates: start: 2009
  4. MAGNE B6 [Suspect]
     Active Substance: MAGNESIUM\PYRIDOXINE
     Indication: HYPOMAGNESAEMIA
     Dosage: 2 IN THE MORNING AND 2 IN THE EVENING
     Route: 048
     Dates: start: 20200604
  5. LEVOTHYROX [Concomitant]
     Active Substance: LEVOTHYROXINE
     Indication: HYPOTHYROIDISM
     Dosage: IN THE MORNING
     Route: 048
  6. UVEDOSE [Concomitant]
     Active Substance: CHOLECALCIFEROL
     Indication: VITAMIN D DEFICIENCY
     Route: 048
     Dates: start: 20180222
  7. METFORMINE [Suspect]
     Active Substance: METFORMIN HYDROCHLORIDE
     Indication: NEW ONSET DIABETES AFTER TRANSPLANTATION
     Dosage: MORNING AND EVENING
     Route: 048
     Dates: start: 20170619
  8. LASILIX [Interacting]
     Active Substance: FUROSEMIDE
     Indication: OEDEMA PERIPHERAL
     Dosage: BREAKABLE TABLET, IN MORNING
     Route: 048
     Dates: start: 20200604
  9. CORTANCYL [Concomitant]
     Active Substance: PREDNISONE
     Indication: ORGAN TRANSPLANT
     Dosage: IN MORNING
     Route: 048
  10. XARELTO [Concomitant]
     Active Substance: RIVAROXABAN
     Indication: ATRIAL FIBRILLATION
     Dosage: IN EVENING
     Route: 048
     Dates: start: 20180208
  11. CERIS [Concomitant]
     Active Substance: TROSPIUM CHLORIDE
     Indication: BENIGN PROSTATIC HYPERPLASIA
     Dosage: 1 IN THE MORNING AND 1 IN THE EVENING
     Route: 048
  12. PRAVASTATIN SODIUM. [Concomitant]
     Active Substance: PRAVASTATIN SODIUM
     Indication: DYSLIPIDAEMIA
     Dosage: IN EVENING
     Route: 048
  13. TETRALYSAL [Concomitant]
     Indication: DERMATITIS ACNEIFORM
     Dosage: 1 GEL AT NOON
     Route: 048
     Dates: start: 201205
  14. TRULICITY [Suspect]
     Active Substance: DULAGLUTIDE
     Indication: NEW ONSET DIABETES AFTER TRANSPLANTATION
     Route: 058
     Dates: start: 20200729
  15. CORDARONE [Concomitant]
     Active Substance: AMIODARONE HYDROCHLORIDE
     Indication: ATRIAL FIBRILLATION
     Dosage: BREAKABLE TABLET, 200 MG IN THE MORNING 5 DAYS A WEEK
     Route: 048
     Dates: start: 20180222
  16. ZYLORIC [Concomitant]
     Active Substance: ALLOPURINOL
     Indication: PRODUCT USED FOR UNKNOWN INDICATION
     Dosage: IN EVENING
     Route: 048
  17. STILNOX [Concomitant]
     Active Substance: ZOLPIDEM TARTRATE
     Indication: PRODUCT USED FOR UNKNOWN INDICATION
     Dosage: IN EVENING; DIVISIBLE COATED TABLET
     Route: 048
     Dates: start: 201710
  18. XATRAL LP [Concomitant]
     Active Substance: ALFUZOSIN
     Indication: BENIGN PROSTATIC HYPERPLASIA
     Dosage: IN EVENING
     Route: 048
     Dates: start: 201602
  19. COAPROVEL [Interacting]
     Active Substance: HYDROCHLOROTHIAZIDE\IRBESARTAN
     Indication: HYPERTENSION
     Dosage: 300 MG/25 MG
     Route: 048
  20. OMEPRAZOLE. [Concomitant]
     Active Substance: OMEPRAZOLE
     Indication: PRODUCT USED FOR UNKNOWN INDICATION
     Dosage: IN AFTERNOON
     Route: 048

REACTIONS (3)
  - Diarrhoea [Recovered/Resolved]
  - Acute kidney injury [Recovered/Resolved]
  - Weight decreased [Recovered/Resolved]

NARRATIVE: CASE EVENT DATE: 202008
